FAERS Safety Report 4568024-1 (Version None)
Quarter: 2005Q1

REPORT INFORMATION
  Report Type: 
  Country: None (occurrence: None)
  Receive Date: 20050202
  Receipt Date: 20050118
  Transmission Date: 20050727
  Serious: Yes (Other)
  Sender: FDA-Public Use
  Company Number: 200510565GDDC

PATIENT
  Age: 79 Year
  Sex: Female

DRUGS (6)
  1. KETEK [Suspect]
     Route: 048
  2. WARFARIN SODIUM [Suspect]
     Dosage: DOSE: UNK
  3. ACETAMINOPHEN [Concomitant]
     Dosage: DOSE: UNK
  4. LEVOTHYROXINE [Concomitant]
  5. PROPAFENONE HYDROCHLORIDE [Concomitant]
  6. SPIRONOLACTONE [Concomitant]

REACTIONS (6)
  - ASTHENIA [None]
  - ATRIAL FIBRILLATION [None]
  - DIZZINESS [None]
  - DRUG INTERACTION [None]
  - HYPONATRAEMIA [None]
  - PROTHROMBIN TIME PROLONGED [None]
